FAERS Safety Report 6313702-7 (Version None)
Quarter: 2009Q3

REPORT INFORMATION
  Report Type: 
  Country: None (occurrence: None)
  Receive Date: 20090817
  Receipt Date: 20090817
  Transmission Date: 20100115
  Serious: Yes (Hospitalization)
  Sender: FDA-Public Use
  Company Number: None

PATIENT
  Age: 62 Year
  Sex: Male
  Weight: 75.7 kg

DRUGS (2)
  1. FUROSEMIDE [Suspect]
     Indication: DIURETIC THERAPY
     Dosage: 40 MG BID PO
     Route: 048
     Dates: start: 20070817, end: 20090812
  2. CISPLATIN [Suspect]
     Indication: CHEMOTHERAPY
     Dosage: 150 MG ONCE IV
     Route: 042
     Dates: start: 20090805, end: 20090805

REACTIONS (2)
  - DIZZINESS [None]
  - HYPOTENSION [None]
